FAERS Safety Report 22012446 (Version 4)
Quarter: 2025Q2

REPORT INFORMATION
  Report Type: Report from Study
  Country: US (occurrence: US)
  Receive Date: 20230220
  Receipt Date: 20250507
  Transmission Date: 20250716
  Serious: Yes (Disabling)
  Sender: NOVARTIS
  Company Number: US-002147023-NVSC2023US038953

PATIENT
  Sex: Female

DRUGS (1)
  1. ENTRESTO [Suspect]
     Active Substance: SACUBITRIL\VALSARTAN
     Indication: Ejection fraction decreased
     Dosage: 1 DOSAGE FORM, BID
     Route: 048

REACTIONS (4)
  - Gait disturbance [Unknown]
  - Nasopharyngitis [Unknown]
  - Dyspnoea [Unknown]
  - Feeling abnormal [Unknown]
